FAERS Safety Report 5897543-0 (Version None)
Quarter: 2008Q3

REPORT INFORMATION
  Report Type: 
  Country: None (occurrence: None)
  Receive Date: 20080925
  Receipt Date: 20080915
  Transmission Date: 20090109
  Serious: Yes (Hospitalization)
  Sender: FDA-Public Use
  Company Number: US-WYE-H06011708

PATIENT
  Sex: Male

DRUGS (1)
  1. PRISTIQ [Suspect]
     Indication: MAJOR DEPRESSION
     Route: 048

REACTIONS (2)
  - SUICIDAL BEHAVIOUR [None]
  - SUICIDAL IDEATION [None]
